FAERS Safety Report 17261938 (Version 1)
Quarter: 2019Q4

REPORT INFORMATION
  Report Type: Spontaneous
  Country: US (occurrence: US)
  Receive Date: 20191218
  Receipt Date: 20191218
  Transmission Date: 20200122
  Serious: No
  Sender: FDA-Public Use
  Company Number: None

PATIENT
  Sex: Female

DRUGS (1)
  1. PROCRIT [Suspect]
     Active Substance: ERYTHROPOIETIN
     Indication: REFRACTORY CYTOPENIA WITH UNILINEAGE DYSPLASIA
     Dosage: ?          OTHER STRENGTH:40,000 UNITS;OTHER DOSE:40,000 UNITS;?
     Route: 058
     Dates: start: 20151008

REACTIONS (2)
  - Urinary tract infection [None]
  - Diarrhoea [None]
